FAERS Safety Report 6387642-1 (Version None)
Quarter: 2009Q4

REPORT INFORMATION
  Report Type: 
  Country: None (occurrence: None)
  Receive Date: 20091005
  Receipt Date: 20090923
  Transmission Date: 20100525
  Serious: Yes (Other)
  Sender: FDA-Public Use
  Company Number: TR-BAYER-200933779GPV

PATIENT
  Age: 49 Year
  Sex: Male

DRUGS (3)
  1. RECOMBINANT FACTOR VIII [Suspect]
     Indication: HAEMORRHAGE PROPHYLAXIS
     Dosage: IMMEDIATELY PRIOR TO TOOTH EXTRACTION
  2. RECOMBINANT FACTOR VIII [Suspect]
  3. TRANEXAMIC ACID [Suspect]
     Indication: HAEMORRHAGE PROPHYLAXIS
     Route: 048

REACTIONS (11)
  - ACTIVATED PARTIAL THROMBOPLASTIN TIME PROLONGED [None]
  - ACUTE MYOCARDIAL INFARCTION [None]
  - AGITATION [None]
  - ASPARTATE AMINOTRANSFERASE INCREASED [None]
  - BLOOD UREA INCREASED [None]
  - CHEST PAIN [None]
  - CORONARY ARTERY STENOSIS [None]
  - HYPERHIDROSIS [None]
  - MOUTH HAEMORRHAGE [None]
  - STRESS [None]
  - TOOTH EXTRACTION [None]
